FAERS Safety Report 23199146 (Version 1)
Quarter: 2023Q4

REPORT INFORMATION
  Report Type: Spontaneous
  Country: US (occurrence: US)
  Receive Date: 20231117
  Receipt Date: 20231117
  Transmission Date: 20240110
  Serious: No
  Sender: FDA-Public Use
  Company Number: US-Stemline Therapeutics, Inc.-2023ST002985

PATIENT
  Age: 73 Year
  Sex: Female

DRUGS (10)
  1. ORSERDU [Suspect]
     Active Substance: ELACESTRANT
     Indication: Product used for unknown indication
     Dosage: 345MG ONCE DAILY
     Route: 048
     Dates: start: 20230801
  2. BENADRYL [Concomitant]
     Active Substance: DIPHENHYDRAMINE HYDROCHLORIDE
  3. ELIQUIS [Concomitant]
     Active Substance: APIXABAN
  4. ENTRESTO [Concomitant]
     Active Substance: SACUBITRIL\VALSARTAN
  5. EPLERENONE [Concomitant]
     Active Substance: EPLERENONE
  6. METOPROLOL [Concomitant]
     Active Substance: METOPROLOL
  7. SACITUZUMAB GOVITECAN [Concomitant]
     Active Substance: SACITUZUMAB GOVITECAN
  8. TYLENOL [Concomitant]
     Active Substance: ACETAMINOPHEN
  9. VITAMIN B6 [Concomitant]
     Active Substance: PYRIDOXINE HYDROCHLORIDE
  10. VITAMIN D3 [Concomitant]
     Active Substance: CHOLECALCIFEROL

REACTIONS (1)
  - Swelling [Not Recovered/Not Resolved]
